FAERS Safety Report 10410595 (Version 2)
Quarter: 2014Q3

REPORT INFORMATION
  Report Type: Spontaneous
  Country: US (occurrence: US)
  Receive Date: 20140826
  Receipt Date: 20140826
  Transmission Date: 20150326
  Serious: No
  Sender: FDA-Public Use
  Company Number: US-BRISTOL-MYERS SQUIBB COMPANY-20979159

PATIENT
  Age: 37 Year
  Sex: Female
  Weight: 68.03 kg

DRUGS (1)
  1. KENALOG-40 [Suspect]
     Active Substance: TRIAMCINOLONE ACETONIDE
     Dosage: 1DF: 60 MG, 10 OR 40 UNITS NOS
     Route: 030
     Dates: start: 20140116

REACTIONS (2)
  - Influenza [Unknown]
  - Injection site atrophy [Unknown]
